FAERS Safety Report 20979284 (Version 4)
Quarter: 2022Q4

REPORT INFORMATION
  Report Type: Spontaneous
  Country: US (occurrence: US)
  Receive Date: 20220620
  Receipt Date: 20221225
  Transmission Date: 20230113
  Serious: Yes (Other)
  Sender: FDA-Public Use
  Company Number: US-JNJFOC-20220615383

PATIENT
  Age: 15 Year
  Sex: Male

DRUGS (1)
  1. NEUTROGENA BEACH DEFENSE WATER PLUS SUN PROTECTION SUNSCREEN BROAD SPE [Suspect]
     Active Substance: AVOBENZONE\HOMOSALATE\OCTISALATE\OCTOCRYLENE
     Indication: Prophylaxis against solar radiation
     Dosage: USE ABOUT FOUR TIMES
     Route: 061
     Dates: start: 20210227

REACTIONS (2)
  - Burkitt^s lymphoma [Recovering/Resolving]
  - Exposure to toxic agent [Unknown]

NARRATIVE: CASE EVENT DATE: 20210601
